FAERS Safety Report 7021865 (Version 2)
Quarter: 2012Q4

REPORT INFORMATION
  Report Type: 
  Country: CA (occurrence: CA)
  Receive Date: 20090612
  Receipt Date: 20121111
  Transmission Date: 20130627
  Serious: Yes (Hospitalization, Other)
  Sender: FDA-Public Use
  Company Number: PHMT2006CA00550

PATIENT
  Sex: Male

DRUGS (8)
  1. SANDOSTATIN LAR [Suspect]
     Indication: CARCINOID TUMOUR
     Dosage: 30 mg, every 4 weeks
     Route: 030
     Dates: start: 20050831
  2. SANDOSTATIN LAR [Suspect]
     Dosage: 30 mg, UNK
     Route: 030
  3. ADALAT XL [Concomitant]
  4. ALLOPURINOL [Concomitant]
  5. ALTACE [Concomitant]
  6. HYDROCHLOROTHIAZIDE [Concomitant]
  7. LOPERAMIDE HYDROCHLORIDE [Concomitant]
  8. LOSEC [Concomitant]

REACTIONS (11)
  - Incision site complication [Recovering/Resolving]
  - Incisional hernia [Unknown]
  - Hepatic neoplasm [Unknown]
  - Hot flush [Unknown]
  - Flushing [Unknown]
  - Palpitations [Unknown]
  - Wheezing [Unknown]
  - Musculoskeletal discomfort [Unknown]
  - Nasopharyngitis [Unknown]
  - Decreased appetite [Unknown]
  - Diarrhoea [Unknown]
